FAERS Safety Report 21466401 (Version 1)
Quarter: 2022Q4

REPORT INFORMATION
  Report Type: Spontaneous
  Country: US (occurrence: None)
  Receive Date: 20221014
  Receipt Date: 20221014
  Transmission Date: 20230113
  Serious: Yes (Other)
  Sender: FDA-Public Use
  Company Number: None

PATIENT
  Age: 12 Year
  Sex: 0

DRUGS (1)
  1. STELARA [Suspect]
     Active Substance: USTEKINUMAB
     Dosage: OTHER FREQUENCY : 90MG EVERY 40 WEEK;?
     Route: 058
     Dates: start: 20210929, end: 20220829

REACTIONS (2)
  - Intracranial pressure increased [None]
  - Therapy interrupted [None]

NARRATIVE: CASE EVENT DATE: 20220829
